FAERS Safety Report 26213491 (Version 1)
Quarter: 2025Q4

REPORT INFORMATION
  Report Type: Spontaneous
  Country: US (occurrence: US)
  Receive Date: 20251230
  Receipt Date: 20251230
  Transmission Date: 20260117
  Serious: Yes (Hospitalization)
  Sender: MYLAN
  Company Number: US-MYLANLABS-2025M1111302

PATIENT
  Age: 76 Year
  Sex: Female

DRUGS (2)
  1. VENLAFAXINE [Suspect]
     Active Substance: VENLAFAXINE HYDROCHLORIDE
     Indication: Depression
     Dosage: UNK; RECEIVED AS IMMEDIATE-RELEASE
  2. VENLAFAXINE [Suspect]
     Active Substance: VENLAFAXINE HYDROCHLORIDE
     Dosage: UNK; RESTARTED

REACTIONS (4)
  - Antidepressant discontinuation syndrome [Recovering/Resolving]
  - Encephalopathy [Recovered/Resolved]
  - Delirium [Recovering/Resolving]
  - Treatment noncompliance [Unknown]
